FAERS Safety Report 5132494-0 (Version None)
Quarter: 2006Q4

REPORT INFORMATION
  Report Type: 
  Country: None (occurrence: None)
  Receive Date: 20061023
  Receipt Date: 20060712
  Transmission Date: 20070319
  Serious: Yes (Other)
  Sender: FDA-Public Use
  Company Number: PHRM2006FR02104

PATIENT
  Age: 13 Year
  Sex: Male
  Weight: 101 kg

DRUGS (2)
  1. RITALIN [Suspect]
     Indication: ATTENTION DEFICIT/HYPERACTIVITY DISORDER
     Dosage: 40 MG/DAY
     Route: 048
     Dates: start: 20031126, end: 20060328
  2. RITALIN [Suspect]
     Dosage: 60 MG/DAY
     Route: 048
     Dates: start: 20060329, end: 20060712

REACTIONS (1)
  - HYPERTENSION [None]
